FAERS Safety Report 8977591 (Version 1)
Quarter: 2012Q4

REPORT INFORMATION
  Report Type: 
  Country: US (occurrence: US)
  Receive Date: 20121220
  Receipt Date: 20121220
  Transmission Date: 20130627
  Serious: No
  Sender: FDA-Public Use
  Company Number: US-TEVA-377163USA

PATIENT
  Age: 22 Year
  Sex: Female
  Weight: 70.37 kg

DRUGS (1)
  1. PLAN B ONE-STEP [Suspect]
     Indication: POST COITAL CONTRACEPTION
     Dosage: 1.5 Milligram Daily;
     Route: 048
     Dates: start: 20121030, end: 20121030

REACTIONS (3)
  - Weight increased [Not Recovered/Not Resolved]
  - Menstruation irregular [Not Recovered/Not Resolved]
  - Breast pain [Not Recovered/Not Resolved]
